FAERS Safety Report 6306038-1 (Version None)
Quarter: 2009Q3

REPORT INFORMATION
  Report Type: 
  Country: None (occurrence: None)
  Receive Date: 20090810
  Receipt Date: 20090810
  Transmission Date: 20100115
  Serious: Yes (Other)
  Sender: FDA-Public Use
  Company Number: None

PATIENT
  Sex: Male

DRUGS (1)
  1. OMEPRAZOLE [Suspect]
     Indication: GASTROOESOPHAGEAL REFLUX DISEASE
     Dosage: 20MG QD PO
     Route: 048
     Dates: start: 20090728, end: 20090801

REACTIONS (3)
  - CARDIAC MURMUR [None]
  - CHEST DISCOMFORT [None]
  - DEPRESSION [None]
